FAERS Safety Report 6205976-8 (Version None)
Quarter: 2009Q2

REPORT INFORMATION
  Report Type: 
  Country: None (occurrence: None)
  Receive Date: 20090527
  Receipt Date: 20090527
  Transmission Date: 20091009
  Serious: No
  Sender: FDA-Public Use
  Company Number: None

PATIENT
  Age: 57 Year
  Sex: Male

DRUGS (3)
  1. CYCLOSPORINE [Suspect]
     Indication: ACUTE MYELOID LEUKAEMIA
     Dosage: 100 MG BID PO
     Route: 048
     Dates: start: 20081101, end: 20090401
  2. CYCLOSPORINE [Suspect]
     Indication: STEM CELL TRANSPLANT
     Dosage: 100 MG BID PO
     Route: 048
     Dates: start: 20081101, end: 20090401
  3. VORICONAZOLE [Suspect]
     Indication: PROPHYLAXIS
     Dosage: 200 MG BID PO
     Route: 048
     Dates: start: 20090122, end: 20090403

REACTIONS (1)
  - RENAL FAILURE ACUTE [None]
